FAERS Safety Report 10459262 (Version 1)
Quarter: 2014Q3

REPORT INFORMATION
  Report Type: Spontaneous
  Country: US (occurrence: None)
  Receive Date: 20140916
  Receipt Date: 20140916
  Transmission Date: 20150326
  Serious: No
  Sender: FDA-Public Use
  Company Number: None

PATIENT
  Age: 43 Year
  Sex: Female

DRUGS (1)
  1. ENBREL [Suspect]
     Active Substance: ETANERCEPT
     Indication: RHEUMATOID ARTHRITIS
     Route: 058
     Dates: start: 20140828

REACTIONS (5)
  - Injection site rash [None]
  - Pyrexia [None]
  - Oropharyngeal pain [None]
  - Peripheral swelling [None]
  - Hyperhidrosis [None]

NARRATIVE: CASE EVENT DATE: 20140829
